FAERS Safety Report 5729391-6 (Version None)
Quarter: 2008Q2

REPORT INFORMATION
  Report Type: 
  Country: None (occurrence: None)
  Receive Date: 20080501
  Receipt Date: 20080418
  Transmission Date: 20081010
  Serious: Yes (Other)
  Sender: FDA-Public Use
  Company Number: 2005BI013588

PATIENT
  Age: 83 Year
  Sex: Male
  Weight: 89.3586 kg

DRUGS (7)
  1. ZEVALIN [Suspect]
     Indication: NON-HODGKIN'S LYMPHOMA
     Dosage: 32 MCI; 1X; IV
     Route: 042
     Dates: start: 20050615, end: 20050622
  2. RITUXIMAB [Concomitant]
  3. ALBUTEROL [Concomitant]
  4. SPIRIVA [Concomitant]
  5. EQUATE [Concomitant]
  6. ALLOPURINOL [Concomitant]
  7. PREDNISONE TAB [Concomitant]

REACTIONS (9)
  - BLISTER [None]
  - BURNING SENSATION [None]
  - CAUSTIC INJURY [None]
  - IMPAIRED HEALING [None]
  - INFUSION SITE EXTRAVASATION [None]
  - MALIGNANT NEOPLASM PROGRESSION [None]
  - NON-HODGKIN'S LYMPHOMA [None]
  - PURULENT DISCHARGE [None]
  - SKIN EXFOLIATION [None]
